FAERS Safety Report 11615392 (Version 1)
Quarter: 2015Q4

REPORT INFORMATION
  Report Type: Spontaneous
  Country: US (occurrence: None)
  Receive Date: 20151008
  Receipt Date: 20151008
  Transmission Date: 20160304
  Serious: Yes (Other)
  Sender: FDA-Public Use
  Company Number: None

PATIENT
  Sex: Male
  Weight: 97.52 kg

DRUGS (4)
  1. PROPECIA [Suspect]
     Active Substance: FINASTERIDE
     Indication: PROPHYLAXIS
     Route: 048
     Dates: start: 2000, end: 2006
  2. FINASTERIDE 1MG DR. REDDY^S CAMBER PHARM [Suspect]
     Active Substance: FINASTERIDE
     Indication: PROPHYLAXIS
     Route: 048
     Dates: start: 2006, end: 20140610
  3. PROPECIA [Suspect]
     Active Substance: FINASTERIDE
     Indication: ALOPECIA
     Route: 048
     Dates: start: 2000, end: 2006
  4. FINASTERIDE 1MG DR. REDDY^S CAMBER PHARM [Suspect]
     Active Substance: FINASTERIDE
     Indication: ALOPECIA
     Route: 048
     Dates: start: 2006, end: 20140610

REACTIONS (1)
  - Gynaecomastia [None]

NARRATIVE: CASE EVENT DATE: 20140601
